FAERS Safety Report 8544811-X (Version None)
Quarter: 2012Q3

REPORT INFORMATION
  Report Type: 
  Country: None (occurrence: None)
  Receive Date: 20120727
  Receipt Date: 20120718
  Transmission Date: 20120928
  Serious: Yes (Hospitalization)
  Sender: FDA-Public Use
  Company Number: US-ROCHE-1089668

PATIENT
  Sex: Female
  Weight: 71.278 kg

DRUGS (2)
  1. TEMOZOLOMIDE [Concomitant]
  2. AVASTIN [Suspect]
     Indication: GLIOBLASTOMA MULTIFORME
     Route: 041
     Dates: start: 20100420, end: 20120529

REACTIONS (5)
  - CONVULSION [None]
  - VOMITING [None]
  - MENTAL STATUS CHANGES [None]
  - NAUSEA [None]
  - APHASIA [None]
